FAERS Safety Report 8394958-6 (Version None)
Quarter: 2012Q2

REPORT INFORMATION
  Report Type: 
  Country: None (occurrence: None)
  Receive Date: 20120530
  Receipt Date: 20120110
  Transmission Date: 20120825
  Serious: No
  Sender: FDA-Public Use
  Company Number: US-GLAXOSMITHKLINE-A0961029A

PATIENT
  Age: 45 Year
  Sex: Female

DRUGS (6)
  1. FLOLAN [Suspect]
     Indication: PULMONARY ARTERIAL HYPERTENSION
     Dosage: 27NGKM UNKNOWN
     Route: 042
     Dates: start: 20061005
  2. NEXIUM [Concomitant]
     Dosage: 40MGD PER DAY
  3. LASIX [Concomitant]
     Dosage: 20MGD PER DAY
  4. TRUVADA [Concomitant]
  5. FISH OIL [Concomitant]
     Dosage: 1000MGD PER DAY
     Route: 048
  6. KLOR-CON [Concomitant]
     Dosage: 20MEQ PER DAY

REACTIONS (3)
  - NIGHT SWEATS [None]
  - PREMATURE MENOPAUSE [None]
  - HOT FLUSH [None]
